FAERS Safety Report 9133259 (Version 3)
Quarter: 2013Q1

REPORT INFORMATION
  Report Type: Report from Study
  Country: JP (occurrence: JP)
  Receive Date: 20130301
  Receipt Date: 20130307
  Transmission Date: 20140127
  Serious: Yes (Death)
  Sender: FDA-Public Use
  Company Number: JP-EISAI INC-E2020-12040-CLI-JP

PATIENT
  Age: 76 Year
  Sex: Male
  Weight: 41.9 kg

DRUGS (5)
  1. DONEPEZIL [Suspect]
     Indication: DEMENTIA ALZHEIMER^S TYPE
     Dosage: DOUBLE BLIND 10 MG OR 15 MG
     Route: 048
     Dates: start: 20120713, end: 20120809
  2. DONEPEZIL [Suspect]
     Dosage: DOUBLE BLIND 10 MG OR 23 MG
     Route: 048
     Dates: start: 20120810, end: 20130124
  3. DONEPEZIL [Suspect]
     Dosage: DOUBLE BLIND 15 MG OR 23 MG
     Route: 048
     Dates: start: 20130125, end: 20130221
  4. DONEPEZIL [Suspect]
     Dosage: OPEN LABEL
     Route: 048
     Dates: start: 20130222, end: 20130227
  5. MEMARY [Concomitant]
     Indication: DEMENTIA ALZHEIMER^S TYPE
     Route: 048
     Dates: start: 20110928, end: 20130227

REACTIONS (1)
  - Pneumothorax [Fatal]
